FAERS Safety Report 15597256 (Version 2)
Quarter: 2018Q4

REPORT INFORMATION
  Report Type: Spontaneous
  Country: DE (occurrence: DE)
  Receive Date: 20181108
  Receipt Date: 20181108
  Transmission Date: 20190205
  Serious: Yes (Hospitalization)
  Sender: FDA-Public Use
  Company Number: PHHY2018DE148182

PATIENT
  Age: 69 Year
  Sex: Male
  Weight: 107 kg

DRUGS (7)
  1. HYDROMORPHONE [Concomitant]
     Active Substance: HYDROMORPHONE
     Dosage: 12 MG, QD (DOSAGE FORM: UNSPECIFIED)
     Route: 065
     Dates: start: 20160714, end: 20160803
  2. PREDNISOLON [Suspect]
     Active Substance: PREDNISOLONE
     Indication: PROSTATE CANCER METASTATIC
     Dosage: 10 MG, QD (DOSAGE FORM: UNSPECIFIED)
     Route: 065
     Dates: start: 20150708
  3. HYDROMORPHONE [Concomitant]
     Active Substance: HYDROMORPHONE
     Dosage: 16 MG, QD (DOSAGE FORM: UNSPECIFIED)
     Route: 065
     Dates: start: 20160804
  4. NOVAMINSULFON [Concomitant]
     Active Substance: METAMIZOLE
     Indication: PROSTATE CANCER METASTATIC
     Dosage: 500 MG, QD (DOSAGE FORM: UNSPECIFIED)
     Route: 065
     Dates: start: 20150601
  5. ABIRATERONE ACETATE. [Suspect]
     Active Substance: ABIRATERONE ACETATE
     Indication: PROSTATE CANCER METASTATIC
     Dosage: 1000 MG, QD
     Route: 048
     Dates: start: 20150708
  6. HYDROMORPHONE [Concomitant]
     Active Substance: HYDROMORPHONE
     Indication: PROSTATE CANCER METASTATIC
     Dosage: 8 MG, QD (DOSAGE FORM: UNSPECIFIED)
     Route: 065
     Dates: start: 20150702, end: 20160713
  7. TRENANTONE [Concomitant]
     Active Substance: LEUPROLIDE ACETATE
     Indication: PROSTATE CANCER METASTATIC
     Dosage: 11.25 MG, Q3MO (DOSAGE FORM: UNSPECIFIED)
     Route: 065
     Dates: start: 20150708

REACTIONS (1)
  - Decubitus ulcer [Recovered/Resolved with Sequelae]

NARRATIVE: CASE EVENT DATE: 20170206
